FAERS Safety Report 10450808 (Version 1)
Quarter: 2014Q3

REPORT INFORMATION
  Report Type: Report from Study
  Country: BR (occurrence: BR)
  Receive Date: 20140912
  Receipt Date: 20140912
  Transmission Date: 20150326
  Serious: Yes (Death, Hospitalization, Other)
  Sender: FDA-Public Use
  Company Number: PHHY2014BR117568

PATIENT
  Sex: Male
  Weight: 68 kg

DRUGS (1)
  1. EXJADE [Suspect]
     Active Substance: DEFERASIROX
     Indication: SICKLE CELL ANAEMIA
     Dosage: 29 MG/KG, DAILY
     Route: 048
     Dates: start: 2012

REACTIONS (5)
  - Vomiting [Unknown]
  - Feeling abnormal [Unknown]
  - Cardio-respiratory arrest [Fatal]
  - Hepatic cirrhosis [Unknown]
  - Cardiac disorder [Unknown]
